FAERS Safety Report 8402451 (Version 2)
Quarter: 2013Q2

REPORT INFORMATION
  Report Type: Spontaneous
  Country: US (occurrence: None)
  Receive Date: 20111227
  Receipt Date: 20120426
  Transmission Date: 20140414
  Serious: Yes (Other)
  Sender: FDA-Public Use
  Company Number: PHEH2011US04559

PATIENT
  Age: 34 Year
  Sex: Female

DRUGS (3)
  1. GILENYA [Suspect]
     Indication: RELAPSING-REMITTING MULTIPLE SCLEROSIS
     Dosage: 0.5 MG, EVERYDAY, ORAL
     Route: 048
     Dates: start: 20110706
  2. SINGULAIR [Concomitant]
  3. ZYRTEC [Concomitant]

REACTIONS (2)
  - LETHARGY [None]
  - HEART RATE DECREASED [None]
